FAERS Safety Report 8014311-4 (Version None)
Quarter: 2011Q4

REPORT INFORMATION
  Report Type: 
  Country: None (occurrence: None)
  Receive Date: 20111229
  Receipt Date: 20111215
  Transmission Date: 20120403
  Serious: Yes (Death, Other)
  Sender: FDA-Public Use
  Company Number: GB-CELGENEUS-167-21880-11090213

PATIENT
  Sex: Male

DRUGS (2)
  1. RED BLOOD CELLS [Concomitant]
     Dosage: 2 OTHER
     Route: 065
     Dates: start: 20111109, end: 20111109
  2. REVLIMID [Suspect]
     Route: 048
     Dates: start: 20080630, end: 20110701

REACTIONS (3)
  - DEATH [None]
  - MYELOMA RECURRENCE [None]
  - REFRACTORY ANAEMIA WITH AN EXCESS OF BLASTS [None]
